FAERS Safety Report 20267056 (Version 4)
Quarter: 2022Q1

REPORT INFORMATION
  Report Type: Spontaneous
  Country: US (occurrence: US)
  Receive Date: 20211231
  Receipt Date: 20220325
  Transmission Date: 20220423
  Serious: Yes (Hospitalization)
  Sender: FDA-Public Use
  Company Number: US-PFIZER INC-202101835766

PATIENT
  Age: 49 Year
  Sex: Female
  Weight: 65.76 kg

DRUGS (35)
  1. XELJANZ XR [Suspect]
     Active Substance: TOFACITINIB CITRATE
     Indication: Psoriatic arthropathy
     Dosage: 11 MG, DAILY
     Route: 048
     Dates: start: 20210923, end: 20211203
  2. XELJANZ XR [Suspect]
     Active Substance: TOFACITINIB CITRATE
     Indication: Rheumatoid arthritis
     Dosage: 11 MG, DAILY
     Route: 048
     Dates: start: 20211118, end: 20211217
  3. FLUCONAZOLE [Concomitant]
     Active Substance: FLUCONAZOLE
     Dosage: 100 MG, DAILY
     Route: 048
     Dates: start: 20211203
  4. FOLIC ACID [Concomitant]
     Active Substance: FOLIC ACID
     Dosage: TAKE TWO TABLETS BY MOUTH ONCE DAILY
     Route: 048
     Dates: start: 20200722
  5. HYDROXYCHLOROQUINE SULFATE [Concomitant]
     Active Substance: HYDROXYCHLOROQUINE SULFATE
     Dosage: 200 MG, 2X/DAY
     Route: 048
     Dates: start: 20090901
  6. MEROPENEM [Concomitant]
     Active Substance: MEROPENEM
     Dosage: UNK
     Route: 042
     Dates: start: 20220107
  7. METHOTREXATE [Concomitant]
     Active Substance: METHOTREXATE
     Dosage: 5 DF, WEEKLY
     Dates: start: 20220126
  8. METOPROLOL SUCCINATE [Concomitant]
     Active Substance: METOPROLOL SUCCINATE
     Dosage: 1 TO 2 TABLETS AT BEDTIME
     Route: 048
     Dates: start: 20150803
  9. MOLNUPIRAVIR [Concomitant]
     Active Substance: MOLNUPIRAVIR
     Dosage: X 5 DAYS
     Route: 048
     Dates: start: 20220131
  10. MONTELUKAST SODIUM [Concomitant]
     Active Substance: MONTELUKAST SODIUM
     Indication: Asthma
     Dosage: 10 MG, DAILY
     Route: 048
     Dates: start: 20160519
  11. ONDANSETRON HCL [Concomitant]
     Active Substance: ONDANSETRON HYDROCHLORIDE
     Dosage: 24 MG, AS NEEDED
     Route: 048
     Dates: start: 20211207
  12. PHENAZOPYRIDINE HCL [Concomitant]
     Active Substance: PHENAZOPYRIDINE HYDROCHLORIDE
     Dosage: AFTER MEALS AS NEEDED
     Route: 048
     Dates: start: 20211207
  13. POTASSIUM CHLORIDE [Concomitant]
     Active Substance: POTASSIUM CHLORIDE
     Dosage: 10 MEQ, 1X/DAY
     Route: 048
     Dates: start: 20181001
  14. PREDNISONE [Concomitant]
     Active Substance: PREDNISONE
     Dosage: 6 PILLS (5 MG) DAY ONE AND BY 1 PILL A DAY UNTIL GONE
     Route: 048
     Dates: start: 20210729
  15. PREDNISONE [Concomitant]
     Active Substance: PREDNISONE
     Dosage: X 4 DAYS
     Route: 048
     Dates: start: 20220203
  16. PREDNISONE [Concomitant]
     Active Substance: PREDNISONE
     Dosage: X 3 DAYS
     Route: 048
  17. PREDNISONE [Concomitant]
     Active Substance: PREDNISONE
     Dosage: X 3 DAYS
     Route: 048
  18. PROMETHAZINE HYDROCHLORIDE [Concomitant]
     Active Substance: PROMETHAZINE HYDROCHLORIDE
     Dosage: 50 MG, 4X/DAY
     Route: 048
     Dates: start: 20211209
  19. ROSUVASTATIN CALCIUM [Concomitant]
     Active Substance: ROSUVASTATIN CALCIUM
     Dosage: AT BEDTIME
     Route: 048
     Dates: start: 20210323
  20. SPIRONOLACTONE [Concomitant]
     Active Substance: SPIRONOLACTONE
     Dosage: EVERY MORNING
     Route: 048
     Dates: start: 20190325
  21. TERCONAZOLE [Concomitant]
     Active Substance: TERCONAZOLE
     Dosage: 1 APPLICATOR FULL INTRAVAGINALLY AT BEDTIME NIGHTLY
     Route: 067
     Dates: start: 20211207
  22. TYLENOL 8HR [Concomitant]
     Active Substance: ACETAMINOPHEN
     Dosage: 1 TABLET 3-4 TIMES DAILY
     Route: 048
     Dates: start: 20210707
  23. VITAMINS [Concomitant]
     Active Substance: VITAMINS
     Dosage: UNK
     Dates: start: 20080926
  24. ACETAMINOPHEN\CODEINE PHOSPHATE [Concomitant]
     Active Substance: ACETAMINOPHEN\CODEINE PHOSPHATE
     Indication: Pain
     Dosage: 1 TO 2 TABLETS EVERY 4 TO 6 HOURS AS NEEDED
     Route: 048
     Dates: start: 20150803
  25. ALBUTEROL SULFATE [Concomitant]
     Active Substance: ALBUTEROL SULFATE
     Dosage: TWO PUFFS INTO THE LUNGS EVERY 4 TO 6 HOURS AS NEEDED
     Route: 055
     Dates: start: 20200617
  26. ARNUITY ELLIPTA [Concomitant]
     Active Substance: FLUTICASONE FUROATE
     Dosage: ONE PUFF INTO THE LUNGS ONCE DAILY
     Route: 055
     Dates: start: 20160519
  27. ASMANEX [Concomitant]
     Active Substance: MOMETASONE FUROATE
     Dosage: 1 PUFF TWICE DAILY
     Route: 055
     Dates: start: 20170725
  28. ZITHROMAX [Concomitant]
     Active Substance: AZITHROMYCIN DIHYDRATE
     Dosage: ON DAY 1
     Route: 048
     Dates: start: 20211111
  29. ZITHROMAX [Concomitant]
     Active Substance: AZITHROMYCIN DIHYDRATE
     Dosage: 1 TABLET A DAY FOR 4 DAYS
     Route: 048
  30. BENZONATATE [Concomitant]
     Active Substance: BENZONATATE
     Dosage: 2-3 TIMES DAILY AS DIRECTED
     Route: 048
     Dates: start: 20210707
  31. CETIRIZINE HCL [Concomitant]
     Active Substance: CETIRIZINE HYDROCHLORIDE
     Dosage: 10 MG, 1X/DAY
     Route: 048
     Dates: start: 20181218
  32. FLEXERIL [Concomitant]
     Active Substance: CYCLOBENZAPRINE HYDROCHLORIDE
     Dosage: 1\2 TO 1 TABLET THREE TIMES DAILY AS NEEDED
     Route: 048
     Dates: start: 20050613
  33. DICLOFENAC SODIUM [Concomitant]
     Active Substance: DICLOFENAC SODIUM
     Dosage: WITH FOOD
     Route: 048
     Dates: start: 20160818
  34. CYMBALTA [Concomitant]
     Active Substance: DULOXETINE HYDROCHLORIDE
     Dosage: 60 MG, 2X/DAY
     Dates: start: 20050726
  35. FAMOTIDINE [Concomitant]
     Active Substance: FAMOTIDINE
     Dosage: UNK
     Route: 048
     Dates: start: 20220110

REACTIONS (3)
  - Urinary tract infection [Recovered/Resolved]
  - Transaminases increased [Recovered/Resolved]
  - Hepatic enzyme increased [Not Recovered/Not Resolved]

NARRATIVE: CASE EVENT DATE: 20210101
